FAERS Safety Report 10361038 (Version 1)
Quarter: 2014Q3

REPORT INFORMATION
  Report Type: Spontaneous
  Country: FR (occurrence: None)
  Receive Date: 20140731
  Receipt Date: 20140731
  Transmission Date: 20150326
  Serious: Yes (Life-Threatening)
  Sender: FDA-Public Use
  Company Number: FK201402940

PATIENT
  Age: 60 Year
  Sex: Male

DRUGS (3)
  1. ESMERON (ROCURONIUM BROMIDE) (ROCURONIUM BROMIDE) [Suspect]
     Active Substance: ROCURONIUM BROMIDE
     Indication: ANAESTHESIA
     Dosage: (NOT OTHERWISE SPECIFIED)
     Route: 042
     Dates: start: 20140605, end: 20140605
  2. SUFENTANIL MERCK (SUFENTANIL CITRATE) (SUFENTANIL CITRATE) [Suspect]
     Active Substance: SUFENTANIL
     Indication: ANAESTHESIA
     Dosage: (NOT OTHERWISE SPECIFIED)
     Route: 042
     Dates: start: 20140605, end: 20140605
  3. PROPOFOL FRESENIUS (NOT SPECIFIED) (PROPOFOL) (PROPOFOL) [Suspect]
     Active Substance: PROPOFOL
     Indication: ANAESTHESIA
     Dosage: (NOT OTHERWISE SPECIFIED)
     Route: 042
     Dates: start: 20140605, end: 20140605

REACTIONS (1)
  - Anaphylactic shock [None]
